FAERS Safety Report 23696091 (Version 1)
Quarter: 2024Q2

REPORT INFORMATION
  Report Type: Report from Study
  Country: JP (occurrence: JP)
  Receive Date: 20240402
  Receipt Date: 20240402
  Transmission Date: 20240716
  Serious: Yes (Other)
  Sender: FDA-Public Use
  Company Number: JP-UCBSA-2024013898

PATIENT

DRUGS (2)
  1. BIMEKIZUMAB [Suspect]
     Active Substance: BIMEKIZUMAB
     Indication: Psoriasis
     Dosage: 320 MILLIGRAM, EV 4 WEEKS
  2. BIMEKIZUMAB [Suspect]
     Active Substance: BIMEKIZUMAB
     Indication: Psoriatic arthropathy

REACTIONS (7)
  - Psoriatic arthropathy [Recovering/Resolving]
  - Pruritus [Recovering/Resolving]
  - Oral candidiasis [Recovering/Resolving]
  - Tinea pedis [Recovering/Resolving]
  - Skin exfoliation [Recovering/Resolving]
  - Fatigue [Recovered/Resolved]
  - Dermatitis atopic [Recovering/Resolving]
